FAERS Safety Report 6667435-8 (Version None)
Quarter: 2010Q2

REPORT INFORMATION
  Report Type: 
  Country: None (occurrence: None)
  Receive Date: 20100401
  Receipt Date: 20100325
  Transmission Date: 20101027
  Serious: Yes (Hospitalization)
  Sender: FDA-Public Use
  Company Number: WAES 1003USA01861

PATIENT
  Age: 58 Year
  Sex: Female
  Weight: 77.1115 kg

DRUGS (4)
  1. COZAAR [Suspect]
     Indication: HYPERTENSION
     Dosage: 100 MG/DAILY/PO
     Dates: start: 20091204, end: 20100218
  2. COZAAR [Suspect]
     Indication: HYPERTENSION
     Dosage: 100 MG/DAILY/PO
     Dates: start: 20100218
  3. CAP BLINDED THERAPY UNK [Suspect]
     Indication: HYPERTENSION
     Dosage: 2 DOSE/DAILY/PO
     Route: 048
     Dates: start: 20091221, end: 20100218
  4. CAP BLINDED THERAPY UNK [Suspect]
     Indication: HYPERTENSION
     Dosage: 1 DOSE/DAILY/PO
     Route: 048
     Dates: start: 20100101

REACTIONS (4)
  - FATIGUE [None]
  - HYPERTENSION [None]
  - NO THERAPEUTIC RESPONSE [None]
  - PANCREATITIS ACUTE [None]
